FAERS Safety Report 25709070 (Version 1)
Quarter: 2025Q3

REPORT INFORMATION
  Report Type: Spontaneous
  Country: US (occurrence: US)
  Receive Date: 20250821
  Receipt Date: 20250821
  Transmission Date: 20251021
  Serious: No
  Sender: AMGEN
  Company Number: US-AMGEN-USASP2025164862

PATIENT
  Age: 52 Year
  Sex: Female

DRUGS (22)
  1. OTEZLA [Suspect]
     Active Substance: APREMILAST
     Indication: Product used for unknown indication
     Dosage: 30 MILLIGRAM, BID
     Route: 048
     Dates: start: 20181228
  2. ALBUTEROL SULFATE [Concomitant]
     Active Substance: ALBUTEROL SULFATE
  3. ACETAMINOPHEN\CODEINE PHOSPHATE [Concomitant]
     Active Substance: ACETAMINOPHEN\CODEINE PHOSPHATE
  4. ATROVENT HFA [Concomitant]
     Active Substance: IPRATROPIUM BROMIDE
  5. AZITHROMYCIN [Concomitant]
     Active Substance: AZITHROMYCIN
  6. Betameth [Concomitant]
  7. CALCIPOTRIENE [Concomitant]
     Active Substance: CALCIPOTRIENE
  8. CLOBETASOL [Concomitant]
     Active Substance: CLOBETASOL
  9. DICLOFENAC [Interacting]
     Active Substance: DICLOFENAC
  10. DOXYCYCLINE HYCLATE [Concomitant]
     Active Substance: DOXYCYCLINE HYCLATE
  11. FLUCONAZOLE [Concomitant]
     Active Substance: FLUCONAZOLE
  12. FLUOCINONIDE [Concomitant]
     Active Substance: FLUOCINONIDE
  13. FLUTICASONE PROPIONATE\SALMETEROL XINAFOATE [Concomitant]
     Active Substance: FLUTICASONE PROPIONATE\SALMETEROL XINAFOATE
  14. FLUTICASONE [Concomitant]
     Active Substance: FLUTICASONE
  15. IBUPROFEN [Concomitant]
     Active Substance: IBUPROFEN
  16. KENALOG [Concomitant]
     Active Substance: TRIAMCINOLONE ACETONIDE
  17. LISINOPRIL [Concomitant]
     Active Substance: LISINOPRIL
  18. OMEPRAZOLE [Concomitant]
     Active Substance: OMEPRAZOLE
  19. ROSUVASTATIN [Concomitant]
     Active Substance: ROSUVASTATIN
  20. SALICYLIC ACID [Concomitant]
     Active Substance: SALICYLIC ACID
  21. VITAMIN D [Concomitant]
     Active Substance: VITAMIN D NOS
  22. ZORYVE [Concomitant]
     Active Substance: ROFLUMILAST

REACTIONS (2)
  - Therapy non-responder [Unknown]
  - Product dose omission issue [Unknown]

NARRATIVE: CASE EVENT DATE: 20250701
